FAERS Safety Report 5799438-X (Version None)
Quarter: 2008Q3

REPORT INFORMATION
  Report Type: 
  Country: None (occurrence: None)
  Receive Date: 20080703
  Receipt Date: 20080624
  Transmission Date: 20090109
  Serious: Yes (Hospitalization)
  Sender: FDA-Public Use
  Company Number: FR-BRISTOL-MYERS SQUIBB COMPANY-14246961

PATIENT
  Age: 26 Year
  Sex: Female

DRUGS (11)
  1. ENDOXAN [Suspect]
     Indication: BRAIN NEOPLASM
     Dosage: LAST CHEMOTHERAPY ADMINISTERED FROM 09 TO 13MAY08 ASSOCIATING FROM DAY 2 TO DAY 5
     Route: 042
     Dates: start: 20080510, end: 20080513
  2. CARBOPLATIN [Suspect]
     Indication: BRAIN NEOPLASM
     Dosage: LAST CHEMOTHERAPY ADMINISTERED FROM 09 TO 13MAY08 ASSOCIATING FROM DAY 2 TO DAY 5
     Route: 042
     Dates: start: 20080510, end: 20080513
  3. ETOPOSIDE [Suspect]
     Indication: BRAIN NEOPLASM
     Dosage: LAST CHEMOTHERAPY ADMINISTERED FROM 09 TO 13MAY08 ASSOCIATING FROM DAY 1 TO DAY 5
     Route: 042
     Dates: start: 20080509, end: 20080513
  4. AUGMENTIN '125' [Concomitant]
     Route: 042
     Dates: start: 20080507, end: 20080515
  5. OFLOCET [Concomitant]
     Route: 042
     Dates: start: 20080507, end: 20080515
  6. UROMITEXAN [Concomitant]
     Dates: start: 20080510, end: 20080513
  7. SOLUPRED [Concomitant]
     Dosage: STOPPED ON DAY 3
     Dates: start: 20080511, end: 20080501
  8. PRIMPERAN TAB [Concomitant]
  9. ZOPHREN [Concomitant]
  10. INNOHEP [Concomitant]
  11. MINIRIN [Concomitant]
     Indication: DIABETES INSIPIDUS

REACTIONS (3)
  - ACUTE PULMONARY OEDEMA [None]
  - AGRANULOCYTOSIS [None]
  - COLITIS ULCERATIVE [None]
